FAERS Safety Report 8819131 (Version 1)
Quarter: 2012Q4

REPORT INFORMATION
  Report Type: Spontaneous
  Country: US (occurrence: None)
  Receive Date: 20121004
  Receipt Date: 20121004
  Transmission Date: 20130627
  Serious: Yes (Hospitalization)
  Sender: FDA-Public Use
  Company Number: DL2012-0664

PATIENT
  Age: 23 Year
  Sex: Female

DRUGS (3)
  1. MIFEPRISTONE [Suspect]
     Indication: TERMINATION OF PREGNANCY
     Route: 048
     Dates: start: 20120711
  2. MISOPROSTOL [Suspect]
     Route: 002
     Dates: start: 20120712
  3. DOXYCYLINE [Concomitant]

REACTIONS (3)
  - Pain [None]
  - Nausea [None]
  - Vomiting [None]
